APPROVED DRUG PRODUCT: CEFAZOLIN IN DEXTROSE
Active Ingredient: CEFAZOLIN SODIUM
Strength: EQ 2GM BASE/100ML (EQ 20MG BASE/ML)
Dosage Form/Route: SOLUTION;INTRAVENOUS
Application: N207131 | Product #001
Applicant: BAXTER HEALTHCARE CORP
Approved: Aug 7, 2015 | RLD: Yes | RS: Yes | Type: RX